FAERS Safety Report 5384968-5 (Version None)
Quarter: 2007Q3

REPORT INFORMATION
  Report Type: 
  Country: None (occurrence: None)
  Receive Date: 20070709
  Receipt Date: 20070625
  Transmission Date: 20080115
  Serious: Yes (Hospitalization)
  Sender: FDA-Public Use
  Company Number: CFX20070004

PATIENT
  Age: 90 Year
  Sex: Female
  Weight: 40 kg

DRUGS (2)
  1. CIPROFLOXACIN [Suspect]
     Indication: ASPIRATION TRACHEAL
     Dosage: 750 MG BID
  2. CIPROFLOXACIN [Suspect]
     Indication: PROTEUS INFECTION
     Dosage: 750 MG BID

REACTIONS (4)
  - ACUTE ABDOMEN [None]
  - DUODENAL ULCER PERFORATION [None]
  - NEPHROPATHY [None]
  - RENAL FAILURE ACUTE [None]
